FAERS Safety Report 8445358-1 (Version None)
Quarter: 2012Q2

REPORT INFORMATION
  Report Type: 
  Country: None (occurrence: None)
  Receive Date: 20120618
  Receipt Date: 20120329
  Transmission Date: 20120825
  Serious: No
  Sender: FDA-Public Use
  Company Number: US-TEVA-330906USA

PATIENT
  Sex: Female

DRUGS (2)
  1. FENTORA [Suspect]
     Route: 002
  2. FENTANYL [Concomitant]
     Route: 062

REACTIONS (1)
  - BLOOD PRESSURE INCREASED [None]
